FAERS Safety Report 23622317 (Version 9)
Quarter: 2025Q2

REPORT INFORMATION
  Report Type: Spontaneous
  Country: US (occurrence: US)
  Receive Date: 20240312
  Receipt Date: 20250618
  Transmission Date: 20250716
  Serious: No
  Sender: PFIZER
  Company Number: US-PFIZER INC-202400049756

PATIENT
  Age: 13 Year
  Sex: Male
  Weight: 38.095 kg

DRUGS (3)
  1. GENOTROPIN [Suspect]
     Active Substance: SOMATROPIN
     Indication: Growth hormone deficiency
     Dosage: 24 MG, AT NIGHT
     Dates: start: 202306
  2. GENOTROPIN [Suspect]
     Active Substance: SOMATROPIN
  3. GENOTROPIN [Suspect]
     Active Substance: SOMATROPIN
     Dosage: 1.4 MG, DAILY

REACTIONS (6)
  - Product packaging quantity issue [Unknown]
  - Product reconstitution quality issue [Unknown]
  - Device material issue [Unknown]
  - Device defective [Unknown]
  - Drug dose omission by device [Unknown]
  - Overdose [Unknown]
